FAERS Safety Report 18296613 (Version 1)
Quarter: 2020Q3

REPORT INFORMATION
  Report Type: Spontaneous
  Country: US (occurrence: US)
  Receive Date: 20200922
  Receipt Date: 20200922
  Transmission Date: 20201103
  Serious: Yes (Disabling, Other)
  Sender: FDA-Public Use
  Company Number: US-SA-2020SA253277

PATIENT

DRUGS (43)
  1. HYDROXYUREA. [Concomitant]
     Active Substance: HYDROXYUREA
     Dosage: UNK
     Dates: start: 20150624, end: 20150907
  2. JAKAFI [Interacting]
     Active Substance: RUXOLITINIB
     Dosage: 5 MG, BID
     Route: 048
  3. FLUOXETINE [Concomitant]
     Active Substance: FLUOXETINE HYDROCHLORIDE
     Dosage: 10 MG
     Dates: start: 20150910, end: 20171109
  4. AMIODARONE [Concomitant]
     Active Substance: AMIODARONE
  5. NORMAL SALINE [Concomitant]
     Active Substance: SODIUM CHLORIDE
     Dosage: 1 L
     Dates: start: 20150828
  6. JAKAFI [Interacting]
     Active Substance: RUXOLITINIB
     Dosage: 2.5 MG, QOD
     Route: 048
     Dates: start: 20161201, end: 20170111
  7. JAKAFI [Interacting]
     Active Substance: RUXOLITINIB
     Dosage: 5 MG, BID
     Route: 065
     Dates: start: 20180504
  8. VENTOLIN HFA [Concomitant]
     Active Substance: ALBUTEROL SULFATE
     Dosage: UNK
     Dates: start: 20160107
  9. VARENICLINE [Concomitant]
     Active Substance: VARENICLINE
     Dosage: UNK
     Dates: start: 20170713, end: 20170907
  10. AMLODIPINE [Concomitant]
     Active Substance: AMLODIPINE BESYLATE
     Dosage: UNK
     Dates: start: 20180107
  11. IBUPROFEN. [Concomitant]
     Active Substance: IBUPROFEN
     Dosage: UNK
     Dates: start: 20180208, end: 20180401
  12. FLUTICASONE PROPIONATE;SALMETEROL XINAFOATE [Concomitant]
     Active Substance: FLUTICASONE PROPIONATE\SALMETEROL XINAFOATE
     Dosage: UNK
     Dates: start: 20171122, end: 20171122
  13. CYCLOBENZAPRINE. [Concomitant]
     Active Substance: CYCLOBENZAPRINE
     Dosage: UNK
     Dates: start: 20180209
  14. TORSEMIDE. [Concomitant]
     Active Substance: TORSEMIDE
     Dosage: UNK
     Dates: start: 20180107, end: 20180822
  15. SINGULAIR [Concomitant]
     Active Substance: MONTELUKAST SODIUM
  16. GABAPENTIN. [Concomitant]
     Active Substance: GABAPENTIN
     Dosage: 100 MG, QD
     Dates: start: 20180608, end: 20180608
  17. METHYLPREDNISOLONE. [Concomitant]
     Active Substance: METHYLPREDNISOLONE
     Dosage: UNK
     Dates: start: 20180107, end: 20180608
  18. FLOMAX [Suspect]
     Active Substance: TAMSULOSIN HYDROCHLORIDE
     Indication: MICTURITION DISORDER
  19. JAKAFI [Interacting]
     Active Substance: RUXOLITINIB
     Dosage: 5 MG, QD
     Route: 048
     Dates: start: 20161013, end: 20161130
  20. JAKAFI [Interacting]
     Active Substance: RUXOLITINIB
     Dosage: 2.5 MG, QD
     Route: 048
     Dates: start: 20170511
  21. JAKAFI [Interacting]
     Active Substance: RUXOLITINIB
     Dosage: 5 MG, QD
     Dates: start: 20170511, end: 20180417
  22. JAKAFI [Interacting]
     Active Substance: RUXOLITINIB
     Dosage: 5 MG, BID
     Route: 048
  23. TRAMADOL. [Concomitant]
     Active Substance: TRAMADOL
  24. CLOPIDOGREL [Concomitant]
     Active Substance: CLOPIDOGREL BISULFATE
  25. JAKAFI [Interacting]
     Active Substance: RUXOLITINIB
     Dosage: 2.5 MG, BID
     Route: 048
     Dates: start: 20170112, end: 20170307
  26. JAKAFI [Interacting]
     Active Substance: RUXOLITINIB
     Dosage: 5 MG, QD, QAM
     Dates: start: 201804
  27. ASPIRIN [ACETYLSALICYLIC ACID] [Concomitant]
     Active Substance: ASPIRIN
     Dosage: UNK
     Dates: start: 20150707, end: 20160125
  28. DOXYCYCLINE. [Concomitant]
     Active Substance: DOXYCYCLINE
     Dosage: UNK
     Dates: start: 20150522, end: 20150811
  29. METOPROLOL TARTRATE. [Concomitant]
     Active Substance: METOPROLOL TARTRATE
     Dosage: UNK
     Dates: start: 20141001
  30. DICLOFENAC [Concomitant]
     Active Substance: DICLOFENAC
     Dosage: UNK
     Dates: start: 20180107, end: 20180209
  31. LISINOPRIL. [Concomitant]
     Active Substance: LISINOPRIL
  32. AZITHROMYCIN ANHYDROUS. [Concomitant]
     Active Substance: AZITHROMYCIN ANHYDROUS
     Dosage: UNK
     Dates: start: 20150708, end: 20150712
  33. TAMSULOSIN [Concomitant]
     Active Substance: TAMSULOSIN
     Dosage: UNK
     Dates: start: 20180107, end: 20180209
  34. MONTELUKAST [Concomitant]
     Active Substance: MONTELUKAST SODIUM
  35. SPIRONOLACTONE. [Concomitant]
     Active Substance: SPIRONOLACTONE
  36. ATORVASTATIN [Concomitant]
     Active Substance: ATORVASTATIN
  37. SALBUTAMOL [Concomitant]
     Active Substance: ALBUTEROL
  38. JAKAFI [Interacting]
     Active Substance: RUXOLITINIB
     Indication: POLYCYTHAEMIA VERA
     Dosage: 5 MG, BID
     Route: 048
     Dates: start: 20150910
  39. JAKAFI [Interacting]
     Active Substance: RUXOLITINIB
     Dosage: 10 MG, QD
     Route: 048
     Dates: start: 201509, end: 20161012
  40. JAKAFI [Interacting]
     Active Substance: RUXOLITINIB
     Dosage: 5 MG, BID
     Route: 048
  41. HYDROXYZINE [Concomitant]
     Active Substance: HYDROXYZINE HYDROCHLORIDE
  42. DULERA [Concomitant]
     Active Substance: FORMOTEROL FUMARATE DIHYDRATE\MOMETASONE FUROATE
  43. NORMAL SALINE [Concomitant]
     Active Substance: SODIUM CHLORIDE
     Dosage: 1 UNK
     Dates: start: 20150825

REACTIONS (23)
  - Pain in extremity [Unknown]
  - Anxiety [Recovered/Resolved]
  - Disability [Not Recovered/Not Resolved]
  - Weight fluctuation [Unknown]
  - Neuropathy peripheral [Not Recovered/Not Resolved]
  - Sinusitis [Recovered/Resolved]
  - Euphoric mood [Unknown]
  - Dizziness [Recovered/Resolved]
  - Asthma [Recovered/Resolved]
  - Musculoskeletal pain [Not Recovered/Not Resolved]
  - Weight increased [Not Recovered/Not Resolved]
  - Asthenia [Unknown]
  - Gait disturbance [Unknown]
  - Incorrect dose administered [Unknown]
  - Blood creatinine increased [Recovered/Resolved]
  - Sinusitis [Recovered/Resolved]
  - Drug interaction [Unknown]
  - Unevaluable event [Unknown]
  - Product dose omission issue [Unknown]
  - Myocardial infarction [Unknown]
  - Micturition disorder [Not Recovered/Not Resolved]
  - Hypocalcaemia [Recovered/Resolved]
  - Weight increased [Recovered/Resolved]

NARRATIVE: CASE EVENT DATE: 20150825
